FAERS Safety Report 4488117-7 (Version None)
Quarter: 2004Q4

REPORT INFORMATION
  Report Type: 
  Country: None (occurrence: None)
  Receive Date: 20041022
  Receipt Date: 20041019
  Transmission Date: 20050328
  Serious: Yes (Life-Threatening, Hospitalization)
  Sender: FDA-Public Use
  Company Number: ESWYE962811AUG04

PATIENT
  Age: 68 Year
  Sex: Male

DRUGS (2)
  1. RAPAMUNE [Suspect]
     Dosage: 2 MG 1X PER 1 DAY; ORAL
     Route: 048
     Dates: start: 20011201, end: 20040811
  2. IMIPENEM (IMIPENEM) [Concomitant]

REACTIONS (8)
  - CARDIAC ARREST [None]
  - CATHETER RELATED INFECTION [None]
  - CONVULSION [None]
  - ENCEPHALOPATHY [None]
  - ESCHAR [None]
  - GRAFT INFECTION [None]
  - PYELONEPHRITIS [None]
  - URINARY TRACT INFECTION [None]
